FAERS Safety Report 5623342-0 (Version None)
Quarter: 2008Q1

REPORT INFORMATION
  Report Type: 
  Country: None (occurrence: None)
  Receive Date: 20080212
  Receipt Date: 20080207
  Transmission Date: 20080703
  Serious: Yes (Hospitalization, Other)
  Sender: FDA-Public Use
  Company Number: JP-SANOFI-SYNTHELABO-A01200800935

PATIENT
  Sex: Female

DRUGS (5)
  1. ZOLOFT [Suspect]
     Indication: DEPRESSION
     Dosage: UNK
     Route: 048
     Dates: start: 20071228, end: 20080108
  2. MYSLEE [Suspect]
     Indication: INSOMNIA
     Route: 048
     Dates: start: 20080108, end: 20080108
  3. MYSLEE [Suspect]
     Indication: ACCIDENTAL OVERDOSE
     Route: 048
     Dates: start: 20080108, end: 20080108
  4. MYSLEE [Suspect]
     Route: 048
     Dates: start: 20080107
  5. MYSLEE [Suspect]
     Route: 048
     Dates: start: 20080107

REACTIONS (3)
  - ALTERED STATE OF CONSCIOUSNESS [None]
  - INTENTIONAL OVERDOSE [None]
  - RHABDOMYOLYSIS [None]
